FAERS Safety Report 7388030-1 (Version None)
Quarter: 2011Q2

REPORT INFORMATION
  Report Type: 
  Country: None (occurrence: None)
  Receive Date: 20110401
  Receipt Date: 20110328
  Transmission Date: 20111010
  Serious: No
  Sender: FDA-Public Use
  Company Number: US-PFIZER INC-2007072792

PATIENT
  Sex: Female
  Weight: 77.3 kg

DRUGS (8)
  1. AMBIEN [Concomitant]
  2. CHANTIX [Suspect]
     Dosage: 1 MG, UNK
  3. BLACK COHOSH [Concomitant]
  4. CHANTIX [Suspect]
     Dosage: 0.5 MG, 2X/DAY
     Dates: start: 20070819, end: 20070822
  5. CHANTIX [Suspect]
     Dosage: 1 MG, 2X/DAY
     Dates: start: 20070823
  6. FISH OIL [Concomitant]
  7. CHANTIX [Suspect]
     Indication: SMOKING CESSATION THERAPY
     Dosage: 0.5 MG, 1X/DAY
     Dates: start: 20070816, end: 20070818
  8. LOVASTATIN [Concomitant]

REACTIONS (3)
  - ABNORMAL DREAMS [None]
  - SLEEP DISORDER [None]
  - HOT FLUSH [None]
